FAERS Safety Report 10268106 (Version 1)
Quarter: 2014Q2

REPORT INFORMATION
  Report Type: Spontaneous
  Country: US (occurrence: US)
  Receive Date: 20140630
  Receipt Date: 20140630
  Transmission Date: 20141212
  Serious: No
  Sender: FDA-Public Use
  Company Number: US-PFIZER INC-2014180208

PATIENT
  Age: 61 Year
  Sex: Female
  Weight: 56.69 kg

DRUGS (4)
  1. LYRICA [Suspect]
     Indication: FIBROMYALGIA
     Dosage: 75 MG, DAILY
  2. LYRICA [Suspect]
     Dosage: 75 MG, DAILY
     Dates: start: 20140617
  3. PRILOSEC [Concomitant]
     Indication: HYPERCHLORHYDRIA
     Dosage: 20.6 MG, DAILY
  4. LORAZEPAM [Concomitant]
     Dosage: UNK

REACTIONS (6)
  - Drug ineffective [Not Recovered/Not Resolved]
  - Headache [Not Recovered/Not Resolved]
  - Myalgia [Not Recovered/Not Resolved]
  - Vision blurred [Unknown]
  - Dizziness [Unknown]
  - Panic attack [Unknown]
